FAERS Safety Report 25074368 (Version 1)
Quarter: 2025Q1

REPORT INFORMATION
  Report Type: Spontaneous
  Country: RU (occurrence: RU)
  Receive Date: 20250313
  Receipt Date: 20250313
  Transmission Date: 20250409
  Serious: No
  Sender: ANI
  Company Number: RU-ANIPHARMA-015885

PATIENT
  Age: 18 Year
  Sex: Female

DRUGS (2)
  1. FLUVOXAMINE [Suspect]
     Active Substance: FLUVOXAMINE
     Indication: Depression
  2. FLUVOXAMINE [Suspect]
     Active Substance: FLUVOXAMINE
     Indication: Obsessive thoughts

REACTIONS (1)
  - Epistaxis [Recovered/Resolved]
